FAERS Safety Report 8310078-0 (Version None)
Quarter: 2012Q2

REPORT INFORMATION
  Report Type: 
  Country: None (occurrence: None)
  Receive Date: 20120423
  Receipt Date: 20120413
  Transmission Date: 20120825
  Serious: Yes (Hospitalization)
  Sender: FDA-Public Use
  Company Number: 2012SP020094

PATIENT
  Age: 39 Year
  Sex: Female
  Weight: 53.6 kg

DRUGS (5)
  1. NORGESTREL AND ETHINYL ESTRADIOL [Concomitant]
  2. GONAPURE (PUREIFIED HUMAN MENOPAUSAL GONADOTROPHIN) [Concomitant]
  3. HMG-TEIZO [Concomitant]
  4. HCG-MOCHIDA [Concomitant]
  5. GANIRELIX ACETATE INJECTION [Suspect]
     Indication: PREVENTION OF PREMATURE OVULATION
     Dosage: 0.25 MG;;SC
     Route: 058
     Dates: start: 20120113, end: 20120115

REACTIONS (1)
  - ABORTION MISSED [None]
